FAERS Safety Report 25715847 (Version 1)
Quarter: 2025Q3

REPORT INFORMATION
  Report Type: Spontaneous
  Country: TW (occurrence: TW)
  Receive Date: 20250822
  Receipt Date: 20250822
  Transmission Date: 20251021
  Serious: Yes (Life-Threatening)
  Sender: BAYER HEALTHCARE PHARMACEUTICALS INC.
  Company Number: TW-BAYER-2025A111030

PATIENT
  Age: 68 Year
  Sex: Male

DRUGS (4)
  1. AVELOX [Suspect]
     Active Substance: MOXIFLOXACIN HYDROCHLORIDE
     Indication: Anal abscess
     Dates: start: 20250723, end: 20250728
  2. AVELOX [Suspect]
     Active Substance: MOXIFLOXACIN HYDROCHLORIDE
     Indication: Anal abscess
     Dates: start: 20250802, end: 20250803
  3. ERTAPENEM [Concomitant]
     Active Substance: ERTAPENEM
     Dates: start: 20250728, end: 20250802
  4. ERTAPENEM [Concomitant]
     Active Substance: ERTAPENEM
     Dates: start: 20250804, end: 20250804

REACTIONS (3)
  - Hypotension [Recovered/Resolved]
  - Bradycardia [Recovered/Resolved]
  - Cardiac arrest [Recovered/Resolved]

NARRATIVE: CASE EVENT DATE: 20250804
